FAERS Safety Report 7584844-3 (Version None)
Quarter: 2011Q2

REPORT INFORMATION
  Report Type: 
  Country: None (occurrence: None)
  Receive Date: 20110630
  Receipt Date: 20110627
  Transmission Date: 20111010
  Serious: Yes (Death, Life-Threatening, Hospitalization, Other)
  Sender: FDA-Public Use
  Company Number: PHHY2011JP36770

PATIENT
  Age: 70 Year
  Sex: Male

DRUGS (2)
  1. SUNITINIB MALATE [Suspect]
     Indication: METASTATIC RENAL CELL CARCINOMA
     Dosage: 50 MG, DAILY
     Route: 048
     Dates: start: 20100108, end: 20100710
  2. AFINITOR [Suspect]
     Indication: METASTATIC RENAL CELL CARCINOMA
     Dosage: 10 MG, DAILY
     Route: 048
     Dates: start: 20100712, end: 20100726

REACTIONS (4)
  - NEOPLASM MALIGNANT [None]
  - SMALL INTESTINAL HAEMORRHAGE [None]
  - TUMOUR HAEMORRHAGE [None]
  - GASTRIC HAEMORRHAGE [None]
